FAERS Safety Report 4824049-X (Version None)
Quarter: 2005Q4

REPORT INFORMATION
  Report Type: 
  Country: None (occurrence: None)
  Receive Date: 20051109
  Receipt Date: 20051102
  Transmission Date: 20060501
  Serious: Yes (Hospitalization, Other)
  Sender: FDA-Public Use
  Company Number: DE-BRISTOL-MYERS SQUIBB COMPANY-13167325

PATIENT
  Age: 32 Year
  Sex: Female
  Weight: 68 kg

DRUGS (3)
  1. ABILIFY [Suspect]
     Indication: SCHIZOPHRENIA, PARANOID TYPE
     Dosage: 10 MG ON 07-OCT-05; SLOW UP-TITRATION TO 30 MG UNTIL 24-OCT-05; REDUCED TO 20 MG/D
     Dates: start: 20051007
  2. ERGENYL [Concomitant]
     Indication: MOOD ALTERED
     Dates: start: 20050916
  3. STILNOX [Concomitant]
     Indication: SLEEP DISORDER
     Dates: start: 20051023

REACTIONS (3)
  - AKATHISIA [None]
  - MOTOR DYSFUNCTION [None]
  - RESTLESSNESS [None]
